FAERS Safety Report 25172521 (Version 2)
Quarter: 2025Q2

REPORT INFORMATION
  Report Type: Spontaneous
  Country: CH (occurrence: CH)
  Receive Date: 20250408
  Receipt Date: 20250415
  Transmission Date: 20250717
  Serious: Yes (Hospitalization, Other)
  Sender: JOHNSON AND JOHNSON
  Company Number: CH-JNJFOC-20250404594

PATIENT

DRUGS (3)
  1. REMICADE [Suspect]
     Active Substance: INFLIXIMAB
     Indication: Psoriasis
     Route: 041
     Dates: start: 20240607
  2. REMICADE [Suspect]
     Active Substance: INFLIXIMAB
     Indication: Arthritis
  3. NIVOLUMAB\RELATLIMAB [Concomitant]
     Active Substance: NIVOLUMAB\RELATLIMAB

REACTIONS (5)
  - Metastases to lymph nodes [Unknown]
  - Metastases to skin [Unknown]
  - Pustular psoriasis [Unknown]
  - Phimosis [Unknown]
  - Erythema [Unknown]

NARRATIVE: CASE EVENT DATE: 20240701
